FAERS Safety Report 6622170-7 (Version None)
Quarter: 2010Q1

REPORT INFORMATION
  Report Type: 
  Country: None (occurrence: None)
  Receive Date: 20100305
  Receipt Date: 20100226
  Transmission Date: 20100710
  Serious: Yes (Life-Threatening, Hospitalization)
  Sender: FDA-Public Use
  Company Number: 2010SP000239

PATIENT
  Age: 63 Year
  Sex: Male
  Weight: 68.9 kg

DRUGS (7)
  1. ARFORMOTEROL [Suspect]
     Indication: CHRONIC OBSTRUCTIVE PULMONARY DISEASE
     Dosage: 15 UG;BID;INHALATION
     Route: 055
     Dates: start: 20091112, end: 20091215
  2. IPRATROPIUM [Concomitant]
  3. ALBUTEROL [Concomitant]
  4. MUCINEX [Concomitant]
  5. VARENICLINE [Concomitant]
  6. BUDESONIDE [Concomitant]
  7. ADVAIR DISKUS 100/50 [Concomitant]

REACTIONS (16)
  - BACTERIAL INFECTION [None]
  - BRONCHITIS [None]
  - CANDIDIASIS [None]
  - CHRONIC OBSTRUCTIVE PULMONARY DISEASE [None]
  - CONDITION AGGRAVATED [None]
  - CONSTIPATION [None]
  - DILATATION VENTRICULAR [None]
  - LEFT VENTRICULAR DYSFUNCTION [None]
  - LUNG NEOPLASM [None]
  - PSEUDOMONAS INFECTION [None]
  - PULMONARY FIBROSIS [None]
  - RESPIRATORY DISTRESS [None]
  - SCAR [None]
  - SINUS TACHYCARDIA [None]
  - TACHYPNOEA [None]
  - TRICUSPID VALVE INCOMPETENCE [None]
